FAERS Safety Report 7113053-7 (Version None)
Quarter: 2010Q4

REPORT INFORMATION
  Report Type: 
  Country: None (occurrence: None)
  Receive Date: 20101119
  Receipt Date: 20101115
  Transmission Date: 20110411
  Serious: Yes (Hospitalization)
  Sender: FDA-Public Use
  Company Number: FR-PFIZER INC-2010147653

PATIENT
  Age: 34 Year
  Sex: Male

DRUGS (6)
  1. TAZOCILLINE [Suspect]
     Dosage: UNK
     Route: 042
     Dates: start: 20100901, end: 20100903
  2. PENICILLIN G SODIUM [Suspect]
     Dosage: 20 MIU PER DAY
     Route: 042
     Dates: start: 20100829, end: 20100901
  3. TOPALGIC [Suspect]
     Dosage: UNK
     Route: 048
     Dates: start: 20100829, end: 20100908
  4. DAFALGAN [Suspect]
     Dosage: UNK
     Route: 048
     Dates: start: 20100829, end: 20100908
  5. LOVENOX [Suspect]
     Dosage: UNK
     Route: 058
     Dates: start: 20100829, end: 20100908
  6. GENTAMICIN [Suspect]
     Dosage: UNK
     Route: 042
     Dates: start: 20100901, end: 20100903

REACTIONS (15)
  - ABSCESS LIMB [None]
  - ACUTE FEBRILE NEUTROPHILIC DERMATOSIS [None]
  - CHLAMYDIA TEST POSITIVE [None]
  - CYTOMEGALOVIRUS TEST POSITIVE [None]
  - DERMATITIS CONTACT [None]
  - EOSINOPHILIA [None]
  - EPSTEIN-BARR VIRUS INFECTION [None]
  - EYELID OEDEMA [None]
  - FACE OEDEMA [None]
  - HERPES SIMPLEX SEROLOGY POSITIVE [None]
  - OEDEMA PERIPHERAL [None]
  - RASH MACULO-PAPULAR [None]
  - RASH PRURITIC [None]
  - SKIN EXFOLIATION [None]
  - STAPHYLOCOCCUS TEST POSITIVE [None]
